FAERS Safety Report 9796458 (Version 1)
Quarter: 2014Q1

REPORT INFORMATION
  Report Type: Spontaneous
  Country: GB (occurrence: GB)
  Receive Date: 20140103
  Receipt Date: 20140103
  Transmission Date: 20141002
  Serious: Yes (Other)
  Sender: FDA-Public Use
  Company Number: GB-TEVA-452954ISR

PATIENT
  Age: 2 Decade
  Sex: Female

DRUGS (15)
  1. TACROLIMUS [Suspect]
     Indication: LIVER TRANSPLANT
     Dosage: .5 MILLIGRAM DAILY; ALTERNATING DOSE OF 1MG/0.5MG PER DAY INITIALLY
     Route: 048
     Dates: start: 20080702
  2. MYCOPHENOLATE MOFETIL [Suspect]
     Indication: LIVER TRANSPLANT
     Dosage: 2 GRAM DAILY;
     Route: 048
     Dates: start: 20080702
  3. VORICONAZOLE [Interacting]
     Indication: ASPERGILLUS INFECTION
     Dosage: 350 MILLIGRAM DAILY;
     Route: 048
     Dates: start: 20130925, end: 201310
  4. VORICONAZOLE [Interacting]
     Indication: ASPERGILLUS INFECTION
     Dosage: 300 MILLIGRAM DAILY;
     Route: 048
     Dates: start: 201310
  5. VORICONAZOLE [Interacting]
     Indication: ASPERGILLUS INFECTION
     Dosage: 350 MILLIGRAM DAILY;
     Route: 048
  6. RETINOL [Concomitant]
     Indication: CYSTIC FIBROSIS
  7. COLECALCIFEROL [Concomitant]
  8. ALPHA TOCOPHEROL [Concomitant]
  9. ASPIRIN [Concomitant]
  10. ACETYLCYSTEINE [Concomitant]
  11. CETIRIZINE [Concomitant]
  12. PANCREATIN [Concomitant]
  13. SALBUTAMOL [Concomitant]
     Route: 055
  14. BUDESONIDE AND FORMOTEROL FUMARATE [Concomitant]
  15. INSULIN HUMAN [Concomitant]

REACTIONS (6)
  - Skin exfoliation [Not Recovered/Not Resolved]
  - Renal disorder [Unknown]
  - Alopecia [Not Recovered/Not Resolved]
  - Potentiating drug interaction [Unknown]
  - Lip pain [Recovering/Resolving]
  - Stomatitis [Recovering/Resolving]
